FAERS Safety Report 17045524 (Version 1)
Quarter: 2019Q4

REPORT INFORMATION
  Report Type: Other
  Country: US (occurrence: US)
  Receive Date: 20191118
  Receipt Date: 20191118
  Transmission Date: 20200122
  Serious: No
  Sender: FDA-Public Use
  Company Number: US-LEADIANT BIOSCIENCES INC-2019STPI000313

PATIENT

DRUGS (6)
  1. POTASSIUM [Concomitant]
     Active Substance: POTASSIUM
     Dosage: UNK
  2. PROCYSBI [Concomitant]
     Active Substance: CYSTEAMINE BITARTRATE
  3. VIRT PHOS NEUTRAL [Concomitant]
  4. CYSTARAN [Suspect]
     Active Substance: CYSTEAMINE HYDROCHLORIDE
     Indication: CYSTINOSIS
     Dosage: UNK, Q6H
     Route: 047
     Dates: start: 20150826
  5. PHOSPHA [Concomitant]
     Dosage: UNK
  6. ZOFRAN [Concomitant]
     Active Substance: ONDANSETRON HYDROCHLORIDE

REACTIONS (1)
  - Eye irritation [Unknown]
